FAERS Safety Report 24683600 (Version 1)
Quarter: 2024Q4

REPORT INFORMATION
  Report Type: Report from Study
  Country: MX (occurrence: MX)
  Receive Date: 20241202
  Receipt Date: 20241202
  Transmission Date: 20250114
  Serious: Yes (Other)
  Sender: ABBVIE
  Company Number: MX-ABBOTT-2024A-1392708

PATIENT
  Sex: Male
  Weight: 73 kg

DRUGS (5)
  1. EPIVAL [Suspect]
     Active Substance: DIVALPROEX SODIUM
     Indication: Epilepsy
     Dosage: 3 PILLS DAILY (1500MG PER DAY)?EXTENDED RELEASE TABLET.
     Route: 048
  2. EPIVAL [Suspect]
     Active Substance: DIVALPROEX SODIUM
     Indication: Epilepsy
     Dosage: 1 PILL AT 7:00 IN THE MORNING AND 1 PILL AT 9:00 AT NIGHT
     Route: 048
  3. EPIVAL [Suspect]
     Active Substance: DIVALPROEX SODIUM
     Indication: Epilepsy
     Dosage: 1 MORE PILL AT 2 OF THE AFTERNOON
     Route: 048
  4. JARDIANCE [Concomitant]
     Active Substance: EMPAGLIFLOZIN
     Indication: Diabetes mellitus
     Dosage: 1 PILL DAILY?FORM STRENGTH: 10 MILLIGRAM
     Route: 048
  5. TRIMOLEP [Concomitant]
     Indication: Cerebrovascular accident
     Dosage: 3 TABLETS DAILY IN THE MORNING, AFTERNOON AND NIGHT?FORM STRENGTH:  25 MILLIGRAM
     Route: 048

REACTIONS (4)
  - Diabetes mellitus [Unknown]
  - Fall [Unknown]
  - Cerebrovascular accident [Unknown]
  - Head injury [Unknown]

NARRATIVE: CASE EVENT DATE: 20120101
